FAERS Safety Report 23428419 (Version 4)
Quarter: 2024Q1

REPORT INFORMATION
  Report Type: Spontaneous
  Country: US (occurrence: US)
  Receive Date: 20240122
  Receipt Date: 20240320
  Transmission Date: 20240410
  Serious: No
  Sender: FDA-Public Use
  Company Number: US-PFIZER INC-202300457247

PATIENT
  Age: 73 Year
  Sex: Female
  Weight: 55.782 kg

DRUGS (2)
  1. PREMARIN [Suspect]
     Active Substance: ESTROGENS, CONJUGATED
     Indication: Atrophic vulvovaginitis
     Dosage: 0.5 G, WEEKLY (0.5 GRAMS ON APPLICATOR) ONCE A WEEK.
     Route: 067
  2. PREMARIN [Suspect]
     Active Substance: ESTROGENS, CONJUGATED
     Dosage: 1 G, WEEKLY

REACTIONS (2)
  - Device difficult to use [Unknown]
  - Off label use [Unknown]
